FAERS Safety Report 5405953-0 (Version None)
Quarter: 2007Q3

REPORT INFORMATION
  Report Type: 
  Country: None (occurrence: None)
  Receive Date: 20070802
  Receipt Date: 20070718
  Transmission Date: 20080115
  Serious: Yes (Death)
  Sender: FDA-Public Use
  Company Number: 132

PATIENT
  Sex: Male

DRUGS (1)
  1. FAZACLO 100 MG ODT AVANIR PHARMACEUTICALS [Suspect]
     Dosage: 350 MG PO DAILY
     Route: 048
     Dates: start: 20060214, end: 20070601

REACTIONS (1)
  - DEATH [None]
